FAERS Safety Report 25805489 (Version 1)
Quarter: 2025Q3

REPORT INFORMATION
  Report Type: Spontaneous
  Country: GB (occurrence: GB)
  Receive Date: 20250916
  Receipt Date: 20250916
  Transmission Date: 20251020
  Serious: Yes (Other)
  Sender: ACCORD
  Company Number: None

PATIENT
  Sex: Female

DRUGS (7)
  1. IRINOTECAN [Suspect]
     Active Substance: IRINOTECAN
     Indication: Colorectal cancer
  2. BEVACIZUMAB [Suspect]
     Active Substance: BEVACIZUMAB
     Indication: Colorectal cancer
  3. APREPITANT [Concomitant]
     Active Substance: APREPITANT
  4. ONDANSETRON [Concomitant]
     Active Substance: ONDANSETRON
  5. FLUOROURACIL [Concomitant]
     Active Substance: FLUOROURACIL
  6. METOCLOPRAMIDE [Concomitant]
     Active Substance: METOCLOPRAMIDE
  7. DEXAMETHASONE [Concomitant]
     Active Substance: DEXAMETHASONE

REACTIONS (5)
  - Epistaxis [Unknown]
  - Vision blurred [Unknown]
  - Glossodynia [Unknown]
  - Swollen tongue [Unknown]
  - Dry skin [Unknown]

NARRATIVE: CASE EVENT DATE: 20250901
